FAERS Safety Report 16116412 (Version 1)
Quarter: 2019Q1

REPORT INFORMATION
  Report Type: Spontaneous
  Country: FI (occurrence: FI)
  Receive Date: 20190326
  Receipt Date: 20190326
  Transmission Date: 20190418
  Serious: Yes (Congenital Anomaly, Other)
  Sender: FDA-Public Use
  Company Number: FI-MYLANLABS-2019M1000334

PATIENT
  Sex: Male

DRUGS (20)
  1. KETIPINOR [Suspect]
     Active Substance: QUETIAPINE FUMARATE
     Dosage: 100MG + 100 MG + 200 MG EVERY DAY
     Route: 064
  2. ACETAMINOPHEN. [Suspect]
     Active Substance: ACETAMINOPHEN
     Indication: PRODUCT USED FOR UNKNOWN INDICATION
     Dosage: 1 G, AS NECESSARY, MAX 3 G PER DAY
     Route: 064
  3. OPAMOX [Suspect]
     Active Substance: OXAZEPAM
     Dosage: 15 MG, 3X/DAY (TID)
     Route: 064
  4. KETIPINOR [Suspect]
     Active Substance: QUETIAPINE FUMARATE
     Dosage: INCREASED, AS NECESSARY, UP TO MAX 600 MG/DAY
     Route: 064
  5. EMGESAN [Suspect]
     Active Substance: MAGNESIUM HYDROXIDE
     Dosage: AS NECESSARY, 125 MG MAX 250 MG/DAILY
     Route: 064
  6. TENOX                              /00393701/ [Suspect]
     Active Substance: TEMAZEPAM
     Dosage: AS NECESSARY, UP TO MAX 20 MG/DAY
     Route: 064
  7. KETIPINOR [Suspect]
     Active Substance: QUETIAPINE FUMARATE
     Dosage: 200 MG, ONCE DAILY (QD)
     Route: 064
  8. LORAZEPAM. [Suspect]
     Active Substance: LORAZEPAM
     Indication: PRODUCT USED FOR UNKNOWN INDICATION
     Dosage: 2 MG/ML INJECTION, AS NECESSARY, 4 MG (MAX 8 MG/DAY)
     Route: 064
  9. OPAMOX [Suspect]
     Active Substance: OXAZEPAM
     Indication: PRODUCT USED FOR UNKNOWN INDICATION
     Dosage: 15 MG, AS NEEDED (PRN)
     Route: 064
  10. TENOX                              /00393701/ [Suspect]
     Active Substance: TEMAZEPAM
     Indication: PRODUCT USED FOR UNKNOWN INDICATION
     Dosage: 10 MG, AS NECESSARY, 1 TABLET IN THE EVENINGS
     Route: 064
  11. PROPRANOLOL [Suspect]
     Active Substance: PROPRANOLOL HYDROCHLORIDE
     Indication: PRODUCT USED FOR UNKNOWN INDICATION
     Dosage: 100 MG 1 CAPSULE DAILY
     Route: 064
     Dates: start: 2017
  12. SEROQUEL [Suspect]
     Active Substance: QUETIAPINE FUMARATE
     Indication: PRODUCT USED FOR UNKNOWN INDICATION
     Dosage: 400 MG, 1 TAB DAILY
     Route: 064
  13. KETIPINOR [Suspect]
     Active Substance: QUETIAPINE FUMARATE
     Dosage: 50 MG + 50 MG + 200MG EVERY DAY
     Route: 064
  14. SEROQUEL [Suspect]
     Active Substance: QUETIAPINE FUMARATE
     Dosage: 300 MG, 1 TABLET 3 TIMES DAILY
     Route: 064
  15. OXAMIN [Suspect]
     Active Substance: OXAZEPAM
     Indication: PRODUCT USED FOR UNKNOWN INDICATION
     Dosage: 15 MG, AS NECESSARY, MAX 45 MG/DAILY
     Route: 064
  16. KETIPINOR [Suspect]
     Active Substance: QUETIAPINE FUMARATE
     Dosage: 100 MG, AS NECESSARY, ADDITIONALLY (MAX 300 MG/DAILY)
     Route: 064
  17. KETIPINOR [Suspect]
     Active Substance: QUETIAPINE FUMARATE
     Dosage: 100 MG, 1-2 TABS DAILY
     Route: 064
  18. SEROQUEL [Suspect]
     Active Substance: QUETIAPINE FUMARATE
     Dosage: 500 MG, ONCE DAILY (QD) ADDITIONALLY AS NECESSARY
     Route: 064
  19. OPAMOX [Suspect]
     Active Substance: OXAZEPAM
     Dosage: 15-30MG (MAX 30 MG/DAY)
     Route: 064
  20. KETIPINOR [Suspect]
     Active Substance: QUETIAPINE FUMARATE
     Indication: PRODUCT USED FOR UNKNOWN INDICATION
     Dosage: 100 MG ADDITIONALLY, AS NECESSARY, 1 TABLET (MAX 400 MG/DAY)
     Route: 064

REACTIONS (8)
  - Polydactyly [Unknown]
  - Poor sucking reflex [Unknown]
  - Congenital renal disorder [Unknown]
  - Low birth weight baby [Unknown]
  - Congenital anomaly [Unknown]
  - Premature baby [Unknown]
  - Heart disease congenital [Not Recovered/Not Resolved]
  - Foetal exposure during pregnancy [Recovered/Resolved]

NARRATIVE: CASE EVENT DATE: 20171106
